FAERS Safety Report 22372433 (Version 1)
Quarter: 2023Q2

REPORT INFORMATION
  Report Type: Spontaneous
  Country: US (occurrence: None)
  Receive Date: 20230525
  Receipt Date: 20230525
  Transmission Date: 20230721
  Serious: Yes (Other)
  Sender: FDA-Public Use
  Company Number: None

PATIENT
  Age: 66 Year
  Sex: Female

DRUGS (2)
  1. AMBRISENTAN [Suspect]
     Active Substance: AMBRISENTAN
     Indication: Pulmonary arterial hypertension
     Dosage: FREQUENCY : DAILY;?
     Route: 048
     Dates: start: 20230512
  2. TADALAFIL [Concomitant]
     Active Substance: TADALAFIL
     Dates: start: 20230512

REACTIONS (2)
  - Vision blurred [None]
  - Pain [None]

NARRATIVE: CASE EVENT DATE: 20230525
